FAERS Safety Report 5852084-1 (Version None)
Quarter: 2008Q3

REPORT INFORMATION
  Report Type: 
  Country: None (occurrence: None)
  Receive Date: 20080819
  Receipt Date: 20080819
  Transmission Date: 20090109
  Serious: Yes (Hospitalization)
  Sender: FDA-Public Use
  Company Number: None

PATIENT
  Age: 84 Year
  Sex: Female
  Weight: 51.7 kg

DRUGS (4)
  1. PHENYTOIN [Suspect]
     Indication: CONVULSION
     Dosage: 250MG TID PO  (CHRONIC, DOSE INCREASED 1 WK AGO)
     Route: 048
  2. OSCAL [Concomitant]
  3. KEFLEX [Concomitant]
  4. METAMUCIL [Concomitant]

REACTIONS (1)
  - THERAPEUTIC AGENT TOXICITY [None]
